FAERS Safety Report 6735991-7 (Version None)
Quarter: 2010Q2

REPORT INFORMATION
  Report Type: 
  Country: None (occurrence: None)
  Receive Date: 20100521
  Receipt Date: 20100511
  Transmission Date: 20101027
  Serious: Yes (Other)
  Sender: FDA-Public Use
  Company Number: IT-ELI_LILLY_AND_COMPANY-IT201005003504

PATIENT

DRUGS (1)
  1. GEMCITABINE HCL [Suspect]
     Indication: BLADDER CANCER
     Dosage: 2000 MG/50ML, 2/W ON DAY 1 AND 4
     Route: 043

REACTIONS (1)
  - DYSURIA [None]
